FAERS Safety Report 18946660 (Version 2)
Quarter: 2021Q3

REPORT INFORMATION
  Report Type: Spontaneous
  Country: RU (occurrence: RU)
  Receive Date: 20210226
  Receipt Date: 20210721
  Transmission Date: 20211014
  Serious: Yes (Hospitalization, Other)
  Sender: FDA-Public Use
  Company Number: RU-ELI_LILLY_AND_COMPANY-RU202102007781

PATIENT
  Age: 67 Year
  Sex: Male

DRUGS (6)
  1. PACLITAXEL. [Concomitant]
     Active Substance: PACLITAXEL
     Indication: GASTRIC CANCER STAGE IV
     Dosage: 85 MG, CYCLICAL
     Route: 065
     Dates: start: 20190718, end: 20190924
  2. PACLITAXEL. [Concomitant]
     Active Substance: PACLITAXEL
     Dosage: 85 MG, CYCLICAL
     Route: 065
     Dates: start: 20191015, end: 20191203
  3. RAMUCIRUMAB [Suspect]
     Active Substance: RAMUCIRUMAB
     Dosage: 390 MG, CYCLICAL
     Route: 065
     Dates: start: 20200121, end: 20200414
  4. RAMUCIRUMAB [Suspect]
     Active Substance: RAMUCIRUMAB
     Indication: GASTRIC CANCER STAGE IV
     Dosage: 390 MG, CYCLICAL
     Route: 065
     Dates: start: 20190718, end: 20190924
  5. PACLITAXEL. [Concomitant]
     Active Substance: PACLITAXEL
     Dosage: 85 MG, CYCLICAL
     Route: 065
     Dates: start: 20200121, end: 20200414
  6. RAMUCIRUMAB [Suspect]
     Active Substance: RAMUCIRUMAB
     Dosage: 390 MG, CYCLICAL
     Route: 065
     Dates: start: 20191015, end: 20191203

REACTIONS (4)
  - Haematotoxicity [Unknown]
  - COVID-19 [Unknown]
  - Malignant neoplasm progression [Unknown]
  - Thrombocytopenia [Unknown]

NARRATIVE: CASE EVENT DATE: 20200903
